FAERS Safety Report 17874137 (Version 4)
Quarter: 2021Q3

REPORT INFORMATION
  Report Type: Report from Study
  Country: US (occurrence: US)
  Receive Date: 20200609
  Receipt Date: 20210902
  Transmission Date: 20211014
  Serious: Yes (Hospitalization, Disabling, Other)
  Sender: FDA-Public Use
  Company Number: US-SAKK-2018SA391772AA

PATIENT
  Age: 69 Year
  Sex: Male

DRUGS (3)
  1. FOSAMAX [Concomitant]
     Active Substance: ALENDRONATE SODIUM
     Indication: OSTEOPOROSIS
     Dosage: UNK, UNK
  2. METOPROLOL TARTRATE AND HYDROCHLOROTHIAZIDE [Concomitant]
     Active Substance: HYDROCHLOROTHIAZIDE\METOPROLOL TARTRATE
     Dosage: 12.5 MG, QD
  3. ALEMTUZUMAB [Suspect]
     Active Substance: ALEMTUZUMAB
     Indication: MULTIPLE SCLEROSIS
     Dosage: 12 MG, QD
     Route: 041
     Dates: start: 20181210, end: 20181214

REACTIONS (15)
  - Joint dislocation [Recovered/Resolved]
  - Mobility decreased [Recovering/Resolving]
  - Bedridden [Not Recovered/Not Resolved]
  - Hospitalisation [Unknown]
  - Depression [Recovering/Resolving]
  - Chest pain [Recovered/Resolved]
  - General physical health deterioration [Unknown]
  - Nocturia [Recovering/Resolving]
  - Rash [Not Recovered/Not Resolved]
  - Drug monitoring procedure not performed [Unknown]
  - Condition aggravated [Not Recovered/Not Resolved]
  - Joint injury [Recovered/Resolved]
  - Unevaluable event [Unknown]
  - Secondary progressive multiple sclerosis [Not Recovered/Not Resolved]
  - Fatigue [Recovering/Resolving]

NARRATIVE: CASE EVENT DATE: 20181215
